FAERS Safety Report 4375277-1 (Version None)
Quarter: 2004Q2

REPORT INFORMATION
  Report Type: 
  Country: None (occurrence: None)
  Receive Date: 20040603
  Receipt Date: 20040514
  Transmission Date: 20050107
  Serious: Yes (Hospitalization)
  Sender: FDA-Public Use
  Company Number: FR_040504146

PATIENT
  Age: 23 Year
  Sex: Female

DRUGS (1)
  1. ZYPREXA [Suspect]
     Indication: PSYCHOTIC DISORDER
     Dosage: 10 MG DAY
     Dates: start: 20040501, end: 20040501

REACTIONS (4)
  - ANAEMIA [None]
  - ANGIONEUROTIC OEDEMA [None]
  - BICYTOPENIA [None]
  - THROMBOCYTOPENIA [None]
